FAERS Safety Report 9741547 (Version 1)
Quarter: 2013Q4

REPORT INFORMATION
  Report Type: Report from Study
  Country: US (occurrence: US)
  Receive Date: 20131210
  Receipt Date: 20131210
  Transmission Date: 20140711
  Serious: Yes (Death)
  Sender: FDA-Public Use
  Company Number: US-ROCHE-1316873

PATIENT
  Age: 39 Year
  Sex: Female
  Weight: 77.18 kg

DRUGS (2)
  1. AVASTIN [Suspect]
     Indication: PRODUCT USED FOR UNKNOWN INDICATION
     Route: 065
  2. ANTIANXIETY AGENTS [Concomitant]
     Indication: ANXIETY
     Route: 048
     Dates: end: 20131206

REACTIONS (1)
  - Death [Fatal]
